FAERS Safety Report 7502321-2 (Version None)
Quarter: 2011Q2

REPORT INFORMATION
  Report Type: 
  Country: None (occurrence: None)
  Receive Date: 20110523
  Receipt Date: 20110523
  Transmission Date: 20111010
  Serious: Yes (Other)
  Sender: FDA-Public Use
  Company Number: None

PATIENT
  Age: 51 Year
  Sex: Male
  Weight: 90.7194 kg

DRUGS (1)
  1. FENTANYL [Suspect]
     Indication: PANCREATITIS ACUTE
     Dosage: 100 MCG/H 72 HOUR TIME RELEA TRANSDERMAL
     Route: 062
     Dates: start: 20110506, end: 20110521

REACTIONS (4)
  - MUSCLE SPASMS [None]
  - DRUG WITHDRAWAL SYNDROME [None]
  - PRODUCT QUALITY ISSUE [None]
  - RESTLESS LEGS SYNDROME [None]
